FAERS Safety Report 19119384 (Version 1)
Quarter: 2021Q2

REPORT INFORMATION
  Report Type: Spontaneous
  Country: US (occurrence: US)
  Receive Date: 20210411
  Receipt Date: 20210411
  Transmission Date: 20210717
  Serious: No
  Sender: FDA-Public Use
  Company Number: US-JNJFOC-20210404805

PATIENT
  Age: 62 Year
  Sex: Male
  Weight: 90.8 kg

DRUGS (1)
  1. ZYRTEC [Suspect]
     Active Substance: CETIRIZINE HYDROCHLORIDE
     Indication: HYPERSENSITIVITY
     Dosage: 1 10MG TABLET ONCE DAILY; DATE OF LAST ADMINISTRATION: 28?MAR?2021
     Route: 048
     Dates: start: 20210326

REACTIONS (1)
  - Drug ineffective [Unknown]
